FAERS Safety Report 25307628 (Version 2)
Quarter: 2025Q2

REPORT INFORMATION
  Report Type: Spontaneous
  Country: GB (occurrence: GB)
  Receive Date: 20250513
  Receipt Date: 20250519
  Transmission Date: 20250716
  Serious: Yes (Other)
  Sender: PFIZER
  Company Number: GB-PFIZER INC-PV202500055356

PATIENT
  Age: 55 Year
  Sex: Male

DRUGS (6)
  1. FLUCONAZOLE [Interacting]
     Active Substance: FLUCONAZOLE
     Indication: Chorioretinitis
  2. FLUCONAZOLE [Interacting]
     Active Substance: FLUCONAZOLE
     Indication: Candida infection
  3. CASPOFUNGIN [Interacting]
     Active Substance: CASPOFUNGIN
     Indication: Candida infection
  4. WARFARIN [Interacting]
     Active Substance: WARFARIN
  5. DAPTOMYCIN [Concomitant]
     Active Substance: DAPTOMYCIN
     Indication: Endocarditis
  6. RIFAMPIN [Concomitant]
     Active Substance: RIFAMPIN
     Indication: Endocarditis

REACTIONS (4)
  - Drug interaction [Recovered/Resolved]
  - Intracranial haematoma [Recovered/Resolved]
  - Haemorrhagic transformation stroke [Recovered/Resolved]
  - International normalised ratio increased [Recovered/Resolved]
